FAERS Safety Report 6873660-3 (Version None)
Quarter: 2010Q3

REPORT INFORMATION
  Report Type: 
  Country: None (occurrence: None)
  Receive Date: 20100723
  Receipt Date: 20090326
  Transmission Date: 20110219
  Serious: No
  Sender: FDA-Public Use
  Company Number: US-PFIZER INC-2009157663

PATIENT
  Sex: Female
  Weight: 68.946 kg

DRUGS (3)
  1. CHANTIX [Suspect]
     Dosage: 0.5 MG, 2X/DAY
  2. ACETYLSALICYLIC ACID [Concomitant]
  3. ZOCOR [Concomitant]

REACTIONS (4)
  - DRY MOUTH [None]
  - HEADACHE [None]
  - MOBILITY DECREASED [None]
  - NAUSEA [None]
